FAERS Safety Report 17003910 (Version 1)
Quarter: 2019Q4

REPORT INFORMATION
  Report Type: Spontaneous
  Country: US (occurrence: US)
  Receive Date: 20191107
  Receipt Date: 20191107
  Transmission Date: 20200122
  Serious: No
  Sender: FDA-Public Use
  Company Number: US-MYLANLABS-2019M1101027

PATIENT
  Sex: Female
  Weight: 66 kg

DRUGS (1)
  1. ESTRADIOL VAGINAL CREAM USP [Suspect]
     Active Substance: ESTRADIOL
     Indication: URINARY INCONTINENCE
     Dosage: 1 GRAM, 3XW
     Route: 067

REACTIONS (3)
  - Therapeutic product effect incomplete [Unknown]
  - Product packaging quantity issue [Unknown]
  - Wrong technique in product usage process [Recovered/Resolved]
